FAERS Safety Report 4988649-9 (Version None)
Quarter: 2006Q2

REPORT INFORMATION
  Report Type: 
  Country: None (occurrence: None)
  Receive Date: 20060502
  Receipt Date: 20050406
  Transmission Date: 20061013
  Serious: Yes (Hospitalization)
  Sender: FDA-Public Use
  Company Number: US-MERCK-0504USA01009

PATIENT
  Age: 59 Year
  Sex: Male

DRUGS (14)
  1. VIOXX [Suspect]
     Indication: GOUT
     Route: 048
     Dates: start: 20001101, end: 20010801
  2. VIOXX [Suspect]
     Route: 048
     Dates: start: 20010801, end: 20011001
  3. VIOXX [Suspect]
     Route: 048
     Dates: start: 20030501, end: 20030501
  4. VIOXX [Suspect]
     Route: 048
     Dates: start: 20011001, end: 20020401
  5. VIOXX [Suspect]
     Route: 048
     Dates: start: 20020401, end: 20030501
  6. ALLOPURINOL MSD [Concomitant]
     Route: 065
  7. ALLOPURINOL MSD [Concomitant]
     Route: 065
  8. COLCHICINE [Concomitant]
     Route: 065
  9. ASPIRIN [Concomitant]
     Route: 065
  10. PRAVASTATIN SODIUM [Concomitant]
     Route: 065
  11. AMLODIPINE BESYLATE [Concomitant]
     Route: 065
  12. NORVASC [Concomitant]
     Route: 065
  13. ZOCOR [Concomitant]
     Route: 065
  14. BENEMID [Concomitant]
     Route: 065

REACTIONS (11)
  - ANGINA UNSTABLE [None]
  - ARTERIOSPASM CORONARY [None]
  - ATRIAL FIBRILLATION [None]
  - CORONARY ARTERY DISEASE [None]
  - GOUT [None]
  - HYPERLIPIDAEMIA [None]
  - MUSCULOSKELETAL PAIN [None]
  - OSTEOARTHRITIS [None]
  - OVERDOSE [None]
  - PRESCRIBED OVERDOSE [None]
  - TACHYCARDIA [None]
